FAERS Safety Report 7201699-7 (Version None)
Quarter: 2010Q4

REPORT INFORMATION
  Report Type: 
  Country: None (occurrence: None)
  Receive Date: 20101229
  Receipt Date: 20101228
  Transmission Date: 20110411
  Serious: Yes (Other)
  Sender: FDA-Public Use
  Company Number: ES-B.I. PHARMACEUTICALS,INC./RIDGEFIELD-2010-DE-05738BY

PATIENT
  Age: 85 Year
  Sex: Male

DRUGS (4)
  1. TELMISARTAN [Suspect]
     Dosage: 80 MG
     Route: 048
     Dates: start: 20090101, end: 20091121
  2. MASDIL RETARD [Suspect]
     Dosage: 120 MG
     Route: 048
     Dates: start: 20091102, end: 20091121
  3. ARTILOG [Concomitant]
     Dosage: 200 MG
     Route: 048
     Dates: start: 20091119
  4. XICIL [Concomitant]
     Dosage: 150 MG
     Route: 048
     Dates: start: 20091119

REACTIONS (3)
  - CONFUSIONAL STATE [None]
  - HEAD INJURY [None]
  - SYNCOPE [None]
